FAERS Safety Report 9220570 (Version 2)
Quarter: 2013Q2

REPORT INFORMATION
  Report Type: Spontaneous
  Country: JP (occurrence: JP)
  Receive Date: 20130409
  Receipt Date: 20130417
  Transmission Date: 20140414
  Serious: Yes (Hospitalization)
  Sender: FDA-Public Use
  Company Number: JP-B.I. PHARMACEUTICALS,INC./RIDGEFIELD-2013-BI-09653GD

PATIENT
  Age: 42 Year
  Sex: Female

DRUGS (5)
  1. PERSANTIN [Suspect]
     Indication: NEPHROTIC SYNDROME
     Route: 065
  2. HEPARIN SODIUM [Suspect]
     Indication: NEPHROTIC SYNDROME
     Route: 065
  3. ALBUMIN [Concomitant]
     Indication: NEPHROTIC SYNDROME
     Route: 065
  4. DOPAMINE HYDROCHLORIDE [Concomitant]
     Indication: NEPHROTIC SYNDROME
     Route: 065
  5. FUROSEMIDE [Concomitant]
     Indication: NEPHROTIC SYNDROME
     Route: 065

REACTIONS (5)
  - Caesarean section [Unknown]
  - Subchorionic haematoma [Unknown]
  - Genital haemorrhage [Unknown]
  - Uterine contractions abnormal [Unknown]
  - Exposure during pregnancy [Unknown]
